FAERS Safety Report 25645483 (Version 1)
Quarter: 2025Q3

REPORT INFORMATION
  Report Type: Spontaneous
  Country: US (occurrence: US)
  Receive Date: 20250805
  Receipt Date: 20250805
  Transmission Date: 20251021
  Serious: Yes (Other)
  Sender: BAYER HEALTHCARE PHARMACEUTICALS INC.
  Company Number: US-BAYER-2025A101988

PATIENT
  Sex: Male
  Weight: 71.202 kg

DRUGS (5)
  1. KOVALTRY [Suspect]
     Active Substance: ANTIHEMOPHILIC FACTOR, HUMAN RECOMBINANT
     Indication: Factor VIII deficiency
     Dosage: STRENGTH: 3000 INFUSED: 2200 UNITS (+/-5%) INTRAVENOUSLY 2 TIMES A WEEK ON MONDAY AND WEDNESDAYS AND
     Route: 042
  2. KOVALTRY [Suspect]
     Active Substance: ANTIHEMOPHILIC FACTOR, HUMAN RECOMBINANT
     Indication: Factor VIII deficiency
     Route: 042
  3. KOVALTRY [Suspect]
     Active Substance: ANTIHEMOPHILIC FACTOR, HUMAN RECOMBINANT
     Indication: Factor VIII deficiency
     Dosage: STRENGHT: 2000 INFUSED: 2200 UNITS (+/-5%) INTRAVENOUSLY 2 TIMES A WEEK ON MONDAY AND WEDNESDAYS AND
     Route: 042
  4. KOVALTRY [Suspect]
     Active Substance: ANTIHEMOPHILIC FACTOR, HUMAN RECOMBINANT
     Indication: Factor VIII deficiency
     Route: 042
  5. MELOXICAM [Concomitant]
     Active Substance: MELOXICAM

REACTIONS (4)
  - Haemarthrosis [Not Recovered/Not Resolved]
  - Haemarthrosis [Not Recovered/Not Resolved]
  - Product availability issue [None]
  - Product dose omission issue [None]
